APPROVED DRUG PRODUCT: NICOTINE POLACRILEX
Active Ingredient: NICOTINE POLACRILEX
Strength: EQ 4MG BASE
Dosage Form/Route: GUM, CHEWING;BUCCAL
Application: A074707 | Product #001
Applicant: P AND L DEVELOPMENT LLC
Approved: Mar 19, 1999 | RLD: No | RS: No | Type: OTC